FAERS Safety Report 4640754-2 (Version None)
Quarter: 2005Q2

REPORT INFORMATION
  Report Type: 
  Country: None (occurrence: None)
  Receive Date: 20050419
  Receipt Date: 20050218
  Transmission Date: 20051028
  Serious: No
  Sender: FDA-Public Use
  Company Number: 10334

PATIENT
  Age: 57 Year
  Sex: Female

DRUGS (2)
  1. LEUCOVORIN CALCIUM [Suspect]
     Indication: RECTOSIGMOID CANCER
     Dosage: 75 MG QD PO
     Route: 048
     Dates: start: 20050104, end: 20050131
  2. TEGAFUR URACIL [Suspect]
     Indication: RECTOSIGMOID CANCER
     Dosage: 400 MG QD PO
     Route: 048
     Dates: start: 20050104, end: 20050131

REACTIONS (9)
  - ALANINE AMINOTRANSFERASE INCREASED [None]
  - ANOREXIA [None]
  - ASPARTATE AMINOTRANSFERASE INCREASED [None]
  - BLOOD LACTATE DEHYDROGENASE INCREASED [None]
  - DIARRHOEA [None]
  - EOSINOPHIL PERCENTAGE INCREASED [None]
  - EPIGASTRIC DISCOMFORT [None]
  - LIVER DISORDER [None]
  - MALAISE [None]
